FAERS Safety Report 8119430-X (Version None)
Quarter: 2012Q1

REPORT INFORMATION
  Report Type: 
  Country: None (occurrence: None)
  Receive Date: 20120207
  Receipt Date: 20120131
  Transmission Date: 20120608
  Serious: Yes (Hospitalization, Other)
  Sender: FDA-Public Use
  Company Number: DE-ABBOTT-10P-062-0629480-00

PATIENT
  Sex: Male
  Weight: 58.9 kg

DRUGS (13)
  1. PREDNISOLONE [Concomitant]
     Indication: RHEUMATOID ARTHRITIS
     Dates: start: 19900101
  2. FORMOTEROL FUMARATE [Concomitant]
     Indication: PRODUCT USED FOR UNKNOWN INDICATION
  3. LEVOTHYROXINE SODIUM [Concomitant]
     Indication: PRODUCT USED FOR UNKNOWN INDICATION
  4. HUMIRA [Suspect]
     Route: 058
     Dates: start: 20110601
  5. ACETYLSALICYLIC ACID SRT [Concomitant]
     Indication: PERIPHERAL ARTERIAL OCCLUSIVE DISEASE
     Dosage: 100MG DAILY
     Dates: start: 20100401
  6. TRAMADOL HCL [Concomitant]
     Indication: PAIN
     Dosage: 50MG DAILY
  7. METOPROLOL [Concomitant]
     Indication: HYPERTENSION
     Route: 048
     Dates: start: 19900101
  8. PANTOPRAZOLE [Concomitant]
     Indication: PROPHYLAXIS
  9. HUMIRA [Suspect]
     Route: 058
     Dates: start: 20110201, end: 20110301
  10. VITAMIN D [Concomitant]
     Indication: OSTEOPOROSIS PROPHYLAXIS
  11. HUMIRA [Suspect]
     Indication: RHEUMATOID ARTHRITIS
     Route: 058
     Dates: start: 20071002, end: 20100201
  12. PANTOPRAZOLE [Concomitant]
     Indication: GASTROINTESTINAL MUCOSAL DISORDER
     Dosage: 40MG DAILY
  13. METAMIZOL [Suspect]
     Indication: PAIN

REACTIONS (14)
  - CYST [None]
  - VASCULAR STENOSIS [None]
  - INFLAMMATION [None]
  - OSTEOARTHRITIS [None]
  - SKIN ULCER [None]
  - VASCULAR CALCIFICATION [None]
  - INFECTION [None]
  - CELLULITIS [None]
  - STAPHYLOCOCCAL INFECTION [None]
  - ABNORMAL LOSS OF WEIGHT [None]
  - LEUKOCYTOSIS [None]
  - CONTUSION [None]
  - INFECTED SKIN ULCER [None]
  - FOOT DEFORMITY [None]
